FAERS Safety Report 8920201 (Version 1)
Quarter: 2012Q4

REPORT INFORMATION
  Report Type: 
  Country: ES (occurrence: ES)
  Receive Date: 20121122
  Receipt Date: 20121122
  Transmission Date: 20130627
  Serious: Yes (Death)
  Sender: FDA-Public Use
  Company Number: ES-ROCHE-1157902

PATIENT
  Age: 50 Year

DRUGS (2)
  1. VALIUM [Suspect]
     Indication: ANXIETY
     Route: 030
     Dates: start: 20120917, end: 20120917
  2. ALPRAZOLAM [Interacting]
     Indication: ANXIETY
     Route: 048
     Dates: start: 20120917, end: 20120917

REACTIONS (2)
  - Cardiac arrest [Fatal]
  - Drug interaction [Unknown]
